FAERS Safety Report 24231260 (Version 1)
Quarter: 2024Q3

REPORT INFORMATION
  Report Type: Spontaneous
  Country: US (occurrence: US)
  Receive Date: 20240821
  Receipt Date: 20240821
  Transmission Date: 20241017
  Serious: No
  Sender: AJANTA PHARMA
  Company Number: US-AJANTA-2024AJA00101

PATIENT
  Age: 83 Year
  Sex: Female
  Weight: 165 kg

DRUGS (3)
  1. CHOLESTYRAMINE [Suspect]
     Active Substance: CHOLESTYRAMINE
     Indication: Irritable bowel syndrome
     Dosage: HALF A PACKET DAILY
     Route: 048
     Dates: start: 20240521
  2. Mybertiq [Concomitant]
  3. RESTASIS [Concomitant]
     Active Substance: CYCLOSPORINE

REACTIONS (6)
  - Product taste abnormal [Unknown]
  - Product substitution issue [Unknown]
  - Product packaging difficult to open [Unknown]
  - Incorrect dose administered [Unknown]
  - Product solubility abnormal [Unknown]
  - Product use in unapproved indication [Unknown]

NARRATIVE: CASE EVENT DATE: 20240521
